FAERS Safety Report 12245114 (Version 2)
Quarter: 2016Q2

REPORT INFORMATION
  Report Type: Spontaneous
  Country: US (occurrence: US)
  Receive Date: 20160407
  Receipt Date: 20160419
  Transmission Date: 20160815
  Serious: No
  Sender: FDA-Public Use
  Company Number: US-TEVA-627560USA

PATIENT
  Sex: Female

DRUGS (1)
  1. ZECUITY [Suspect]
     Active Substance: SUMATRIPTAN SUCCINATE
     Dosage: 6.5 MG / 4 HOURS
     Route: 062

REACTIONS (3)
  - Application site paraesthesia [Unknown]
  - Application site exfoliation [Unknown]
  - Device battery issue [Unknown]
